FAERS Safety Report 23795308 (Version 2)
Quarter: 2024Q2

REPORT INFORMATION
  Report Type: Report from Study
  Country: US (occurrence: US)
  Receive Date: 20240429
  Receipt Date: 20240430
  Transmission Date: 20240716
  Serious: Yes (Other)
  Sender: FDA-Public Use
  Company Number: US-SANOFI-02024254

PATIENT
  Age: 64 Year
  Sex: Female

DRUGS (3)
  1. SARILUMAB [Suspect]
     Active Substance: SARILUMAB
     Indication: Rheumatoid arthritis
     Dosage: 200 MG, QOW
  2. HYDROXYCHLOROQUINE [Concomitant]
     Active Substance: HYDROXYCHLOROQUINE
     Dosage: UNK
  3. RINVOQ [Concomitant]
     Active Substance: UPADACITINIB
     Dosage: UNK

REACTIONS (17)
  - Hyperthyroidism [Unknown]
  - Ventricular tachycardia [Unknown]
  - Immunodeficiency [Unknown]
  - Atrial fibrillation [Unknown]
  - Injection site bruising [Unknown]
  - Injection site mass [Unknown]
  - Palpitations [Unknown]
  - Weight decreased [Unknown]
  - Supraventricular tachycardia [Unknown]
  - Feeding disorder [Unknown]
  - Fatigue [Unknown]
  - Atrial tachycardia [Unknown]
  - Skin haemorrhage [Recovering/Resolving]
  - Blister [Recovering/Resolving]
  - Cystitis [Unknown]
  - Sinusitis [Unknown]
  - Upper respiratory tract infection [Unknown]
